FAERS Safety Report 7377468-4 (Version None)
Quarter: 2011Q1

REPORT INFORMATION
  Report Type: 
  Country: None (occurrence: None)
  Receive Date: 20110328
  Receipt Date: 20110314
  Transmission Date: 20110831
  Serious: Yes (Other)
  Sender: FDA-Public Use
  Company Number: PHHY2011IT20622

PATIENT
  Sex: Male

DRUGS (3)
  1. ALISKIREN [Suspect]
     Indication: HYPERTENSION
     Dosage: 150 MG, UNK
     Route: 048
     Dates: start: 20101025, end: 20110201
  2. HYDROCHLOROTHIAZIDE [Concomitant]
  3. AMLODIPINE [Concomitant]

REACTIONS (5)
  - BLOOD SODIUM INCREASED [None]
  - AZOTAEMIA [None]
  - BLOOD CREATININE INCREASED [None]
  - HYPERURICAEMIA [None]
  - RENAL FAILURE ACUTE [None]
